FAERS Safety Report 7832601-2 (Version None)
Quarter: 2011Q4

REPORT INFORMATION
  Report Type: 
  Country: None (occurrence: None)
  Receive Date: 20111024
  Receipt Date: 20111012
  Transmission Date: 20120403
  Serious: No
  Sender: FDA-Public Use
  Company Number: US-BIOGENIDEC-2010BI018627

PATIENT
  Sex: Female

DRUGS (1)
  1. TYSABRI [Suspect]
     Indication: MULTIPLE SCLEROSIS
     Route: 042
     Dates: start: 20070307

REACTIONS (4)
  - STAPHYLOCOCCAL INFECTION [None]
  - SINUSITIS [None]
  - STREPTOCOCCAL INFECTION [None]
  - LARYNGITIS [None]
